FAERS Safety Report 5845751-7 (Version None)
Quarter: 2008Q3

REPORT INFORMATION
  Report Type: 
  Country: None (occurrence: None)
  Receive Date: 20080731
  Receipt Date: 20080528
  Transmission Date: 20090109
  Serious: No
  Sender: FDA-Public Use
  Company Number: US200805005934

PATIENT
  Age: 56 Year
  Sex: Female

DRUGS (5)
  1. BYETTA [Suspect]
     Indication: TYPE 2 DIABETES MELLITUS
     Dosage: 5 UG, SUBCUTANEOUS : 10 UG, SUBCUTANEOUS
     Route: 058
     Dates: start: 20080401, end: 20080501
  2. BYETTA [Suspect]
     Indication: TYPE 2 DIABETES MELLITUS
     Dosage: 5 UG, SUBCUTANEOUS : 10 UG, SUBCUTANEOUS
     Route: 058
     Dates: start: 20080501
  3. GLUCOPHAGE [Concomitant]
  4. AMARYL [Concomitant]
  5. GLYBURIDE [Concomitant]

REACTIONS (1)
  - BLOOD GLUCOSE INCREASED [None]
